FAERS Safety Report 5241996-8 (Version None)
Quarter: 2007Q1

REPORT INFORMATION
  Report Type: 
  Country: None (occurrence: None)
  Receive Date: 20070220
  Receipt Date: 20070208
  Transmission Date: 20070707
  Serious: Yes (Hospitalization)
  Sender: FDA-Public Use
  Company Number: DE-PFIZER INC-2007007499

PATIENT
  Age: 55 Year
  Sex: Male

DRUGS (5)
  1. CEFPODOXIME PROXETIL TABLET [Suspect]
     Indication: INFLUENZA
     Dosage: DAILY DOSE:200MG
     Route: 048
     Dates: start: 20061204, end: 20061201
  2. SIMVASTATIN [Concomitant]
     Dosage: DAILY DOSE:40MG
     Route: 048
  3. HYDROCHLOROTHIAZIDE [Concomitant]
     Dosage: DAILY DOSE:25MG
     Route: 048
     Dates: start: 19900101
  4. QUINAPRIL [Concomitant]
     Dosage: DAILY DOSE:20MG
     Route: 048
  5. METOPROLOL TARTRATE [Concomitant]
     Dosage: DAILY DOSE:50MG
     Route: 048
     Dates: start: 19900101

REACTIONS (3)
  - ARTHRALGIA [None]
  - HEPATIC FUNCTION ABNORMAL [None]
  - HYPERGLYCAEMIA [None]
